FAERS Safety Report 12236046 (Version 1)
Quarter: 2016Q2

REPORT INFORMATION
  Report Type: Report from Study
  Country: CA (occurrence: CA)
  Receive Date: 20160404
  Receipt Date: 20160404
  Transmission Date: 20160815
  Serious: Yes (Hospitalization)
  Sender: FDA-Public Use
  Company Number: PHHY2014CA137276

PATIENT
  Sex: Female

DRUGS (1)
  1. GILENYA [Suspect]
     Active Substance: FINGOLIMOD HYDROCHLORIDE
     Indication: PRODUCT USED FOR UNKNOWN INDICATION
     Route: 048
     Dates: start: 20140827

REACTIONS (7)
  - White blood cell count decreased [Unknown]
  - Vision blurred [Unknown]
  - Decubitus ulcer [Recovering/Resolving]
  - Visual impairment [Unknown]
  - Optic nerve disorder [Unknown]
  - Photopsia [Unknown]
  - Mobility decreased [Not Recovered/Not Resolved]
